FAERS Safety Report 14454669 (Version 2)
Quarter: 2018Q1

REPORT INFORMATION
  Report Type: Spontaneous
  Country: CH (occurrence: CH)
  Receive Date: 20180129
  Receipt Date: 20180207
  Transmission Date: 20180509
  Serious: Yes (Hospitalization)
  Sender: FDA-Public Use
  Company Number: CH-STALLERGENES SAS-2040974

PATIENT
  Age: 37 Year
  Sex: Female

DRUGS (1)
  1. ORALAIR [Suspect]
     Active Substance: ANTHOXANTHUM ODORATUM POLLEN\DACTYLIS GLOMERATA POLLEN\LOLIUM PERENNE POLLEN\PHLEUM PRATENSE POLLEN\POA PRATENSIS POLLEN
     Indication: CONJUNCTIVITIS ALLERGIC
     Route: 060
     Dates: start: 20170113

REACTIONS (3)
  - Benign hydatidiform mole [Recovered/Resolved]
  - Exposure during pregnancy [Recovered/Resolved]
  - Molar abortion [Recovered/Resolved]

NARRATIVE: CASE EVENT DATE: 2017
